FAERS Safety Report 10038271 (Version 1)
Quarter: 2014Q1

REPORT INFORMATION
  Report Type: Spontaneous
  Country: US (occurrence: None)
  Receive Date: 20140306
  Receipt Date: 20140306
  Transmission Date: 20141002
  Serious: Yes (Hospitalization)
  Sender: FDA-Public Use
  Company Number: 163-21880-13073472

PATIENT
  Age: 74 Year
  Sex: Male

DRUGS (11)
  1. REVLIMID (LENALIDOMIDE) (CAPSULES) [Suspect]
     Indication: PLASMA CELL MYELOMA
     Dosage: 03/19/2013 - TEMPORARILY INTERRUPTED
     Route: 048
     Dates: start: 20130319
  2. AMLODIPINE BESYLATE (AMLODIPINE BESILATE) [Concomitant]
  3. BENADRYL (DIPHENHYDRAMINE) [Concomitant]
  4. CIPROFLOXACIN HCL [Concomitant]
  5. DEXAMETHASONE [Concomitant]
  6. FLURAZEPAM HCL [Concomitant]
  7. FLURAZEPAM HCL [Concomitant]
  8. HYDROCODONE-ACETAMINOPHEN (OXYCOCET) [Concomitant]
  9. FLURAZEPAM  HCL (FLURAZEPAN HYDROCHLORIDE) [Concomitant]
  10. HYDROCODONE-ACETAMINOPHEN [Concomitant]
  11. OXYCODONE-ACETAMINOPHEN (OXYCOCET) [Concomitant]

REACTIONS (1)
  - Varicella [None]
